FAERS Safety Report 4681250-6 (Version None)
Quarter: 2005Q2

REPORT INFORMATION
  Report Type: 
  Country: None (occurrence: None)
  Receive Date: 20050603
  Receipt Date: 20050523
  Transmission Date: 20051028
  Serious: Yes (Hospitalization)
  Sender: FDA-Public Use
  Company Number: JP-JNJFOC-20050506725

PATIENT
  Sex: Female
  Weight: 42.2 kg

DRUGS (6)
  1. CRAVIT [Suspect]
     Indication: RESPIRATORY TRACT INFECTION
     Route: 049
  2. VOLTAREN [Suspect]
     Indication: DRUG USE FOR UNKNOWN INDICATION
     Route: 049
  3. TRANSAMIN [Concomitant]
     Route: 065
  4. MUCODYNE [Concomitant]
     Route: 049
  5. TOWAZUREN [Concomitant]
     Route: 049
  6. TOWAZUREN [Concomitant]
     Route: 049

REACTIONS (1)
  - EOSINOPHILIC PNEUMONIA [None]
